FAERS Safety Report 14603636 (Version 1)
Quarter: 2018Q1

REPORT INFORMATION
  Report Type: Spontaneous
  Country: US (occurrence: US)
  Receive Date: 20180306
  Receipt Date: 20180306
  Transmission Date: 20180509
  Serious: No
  Sender: FDA-Public Use
  Company Number: US-AKRON, INC.-2043041

PATIENT
  Age: 46 Year
  Sex: Male

DRUGS (2)
  1. RITONAVIR. [Concomitant]
     Active Substance: RITONAVIR
  2. FLUTICASONE PROPIONATE. [Suspect]
     Active Substance: FLUTICASONE PROPIONATE
     Route: 045

REACTIONS (5)
  - Hypertension [Unknown]
  - Mental status changes [Unknown]
  - Cushing^s syndrome [Unknown]
  - Alopecia [Unknown]
  - Contusion [Unknown]
